FAERS Safety Report 20825339 (Version 1)
Quarter: 2022Q2

REPORT INFORMATION
  Report Type: Report from Study
  Country: US (occurrence: US)
  Receive Date: 20220513
  Receipt Date: 20220513
  Transmission Date: 20220721
  Serious: Yes (Other)
  Sender: FDA-Public Use
  Company Number: US-BRISTOL-MYERS SQUIBB COMPANY-2022-033097

PATIENT
  Age: 56 Year
  Sex: Male
  Weight: 75.2 kg

DRUGS (2)
  1. REVLIMID [Suspect]
     Active Substance: LENALIDOMIDE
     Indication: Follicular lymphoma
     Route: 048
     Dates: start: 20220407
  2. REVLIMID [Suspect]
     Active Substance: LENALIDOMIDE
     Dates: start: 2021

REACTIONS (4)
  - Hypotension [Unknown]
  - Dizziness [Unknown]
  - Fluid retention [Unknown]
  - Cough [Unknown]
